FAERS Safety Report 21765964 (Version 1)
Quarter: 2022Q4

REPORT INFORMATION
  Report Type: Spontaneous
  Country: US (occurrence: None)
  Receive Date: 20221221
  Receipt Date: 20221221
  Transmission Date: 20230112
  Serious: Yes (Hospitalization)
  Sender: FDA-Public Use
  Company Number: None

PATIENT
  Age: 72 Year
  Sex: Female
  Weight: 123.65 kg

DRUGS (10)
  1. PROMACTA [Suspect]
     Active Substance: ELTROMBOPAG OLAMINE
     Indication: Thrombocytopenia
     Dosage: FREQUENCY : DAILY;?
     Route: 048
     Dates: start: 202211
  2. CELLCEPT [Concomitant]
     Active Substance: MYCOPHENOLATE MOFETIL
  3. CYANOCOBALAMIN [Concomitant]
  4. DOCUSATE SODIUM [Concomitant]
  5. ERGOCALCIFEROL [Concomitant]
  6. LASIX [Concomitant]
  7. METOPROLOL [Concomitant]
     Active Substance: METOPROLOL
  8. PREDNISONE [Concomitant]
  9. TACROLIMUS [Concomitant]
  10. ZOFRAN [Concomitant]

REACTIONS (4)
  - Dyspnoea [None]
  - Urinary tract infection [None]
  - Platelet count decreased [None]
  - Influenza [None]
